FAERS Safety Report 8022108-4 (Version None)
Quarter: 2012Q1

REPORT INFORMATION
  Report Type: 
  Country: None (occurrence: None)
  Receive Date: 20120104
  Receipt Date: 20111227
  Transmission Date: 20120608
  Serious: Yes (Other)
  Sender: FDA-Public Use
  Company Number: DE-ABBOTT-11P-062-0885426-00

PATIENT
  Sex: Female

DRUGS (4)
  1. VALPROIC ACID [Suspect]
     Route: 063
  2. LAMOTRIGINE [Suspect]
     Indication: MATERNAL EXPOSURE TIMING UNSPECIFIED
     Route: 064
  3. VALPROIC ACID [Suspect]
     Indication: MATERNAL EXPOSURE TIMING UNSPECIFIED
     Route: 064
  4. LAMOTRIGINE [Suspect]
     Route: 063

REACTIONS (7)
  - SOMNOLENCE [None]
  - ANTICONVULSANT DRUG LEVEL ABNORMAL [None]
  - FOETAL EXPOSURE DURING PREGNANCY [None]
  - FEEDING DISORDER NEONATAL [None]
  - TREMOR [None]
  - BLOOD GLUCOSE DECREASED [None]
  - EXPOSURE DURING BREAST FEEDING [None]
